FAERS Safety Report 10166693 (Version 1)
Quarter: 2014Q2

REPORT INFORMATION
  Report Type: Spontaneous
  Country: US (occurrence: US)
  Receive Date: 20140512
  Receipt Date: 20140512
  Transmission Date: 20141212
  Serious: Yes (Death)
  Sender: FDA-Public Use
  Company Number: US-BEH-2014042399

PATIENT
  Age: 16 Year
  Sex: Female
  Weight: 27 kg

DRUGS (33)
  1. PRIVIGEN [Suspect]
     Indication: COMBINED IMMUNODEFICIENCY
     Dosage: 1-3 HOURS
     Route: 042
  2. PRIVIGEN [Suspect]
     Indication: IMMUNODEFICIENCY COMMON VARIABLE
     Dosage: 1-3 HOURS
     Route: 042
  3. FUROSEMIDE [Concomitant]
  4. METHADONE [Concomitant]
     Dosage: 10 MG/5 ML
  5. PREDNISONE [Concomitant]
  6. BUDESONIDE [Concomitant]
     Dosage: 0.5 MG/2 ML
  7. CHILDREN^S IBUPROFEN [Concomitant]
     Dosage: 100 MG/ 5 ML
  8. THEOPHYLLINE [Concomitant]
     Dosage: 80 MG/15 ML
  9. FOLIC ACID [Concomitant]
  10. CLOTRIMAZOLE [Concomitant]
     Route: 061
  11. FLUCONAZOLE [Concomitant]
  12. LEVOTHYROXINE [Concomitant]
  13. IPRATROPIUM BROMIDE [Concomitant]
  14. LEVALBUTEROL CONC [Concomitant]
     Dosage: 1.25 MG/0.5
  15. BUDESONIDE EC [Concomitant]
  16. SODIUM CHLORIDE [Concomitant]
  17. CVS VITAMIN D [Concomitant]
     Dosage: 400 UNITS/ML
  18. FONDAPARINUX [Concomitant]
     Dosage: 2.5 MG/0.5 ML
  19. MORPHINE NS [Concomitant]
     Dosage: 10 MG/10 ML
  20. LOPERAMIDE [Concomitant]
     Dosage: 1 MG/5 ML
  21. METRONIDAZOLE [Concomitant]
     Dosage: 500 MG/ 100 ML
  22. AZITHROMYCIN [Concomitant]
  23. PROMETHAZINE CODEINE [Concomitant]
  24. ZOFRAN [Concomitant]
     Dosage: 4 MG/5ML
  25. SYMBICORT [Concomitant]
     Dosage: 160-4.5 MCG
  26. HYDROXYZINE [Concomitant]
     Dosage: 10 MG/5 ML
  27. SIMETHICONE [Concomitant]
  28. MUCINEX DM ER [Concomitant]
     Dosage: 600-30 MG
  29. DIPHENHYDRAMINE [Concomitant]
  30. HEPARIN [Concomitant]
     Dosage: 100 UNITS/ML
  31. LIDOCAINE/PRILOCAINE [Concomitant]
  32. EPI-PEN [Concomitant]
  33. OXYGEN [Concomitant]

REACTIONS (1)
  - Death [Fatal]
